FAERS Safety Report 5598580-6 (Version None)
Quarter: 2008Q1

REPORT INFORMATION
  Report Type: 
  Country: None (occurrence: None)
  Receive Date: 20080122
  Receipt Date: 20080114
  Transmission Date: 20080703
  Serious: Yes (Hospitalization)
  Sender: FDA-Public Use
  Company Number: BR-SANOFI-SYNTHELABO-A01200712851

PATIENT
  Sex: Female

DRUGS (6)
  1. AAS [Concomitant]
     Indication: CARDIAC DISORDER
     Dosage: UNK
     Route: 048
     Dates: start: 20060101
  2. ALDACTONE [Concomitant]
     Indication: CARDIAC DISORDER
     Route: 048
     Dates: start: 20060101
  3. SIMVASTATIN [Concomitant]
     Indication: CARDIAC DISORDER
     Route: 048
     Dates: start: 20060101
  4. CAPTOPRIL [Concomitant]
     Indication: CARDIAC DISORDER
     Route: 048
     Dates: start: 20060101
  5. CARVEDILOL [Concomitant]
     Indication: CARDIAC DISORDER
     Route: 048
     Dates: start: 20060101
  6. PLAVIX [Suspect]
     Indication: ANTIPLATELET THERAPY
     Route: 048
     Dates: start: 20060101

REACTIONS (2)
  - CARDIOVASCULAR DISORDER [None]
  - NERVOUS SYSTEM DISORDER [None]
